FAERS Safety Report 13465685 (Version 1)
Quarter: 2017Q2

REPORT INFORMATION
  Report Type: Spontaneous
  Country: US (occurrence: US)
  Receive Date: 20170420
  Receipt Date: 20170420
  Transmission Date: 20170830
  Serious: No
  Sender: FDA-Public Use
  Company Number: None

PATIENT
  Age: 59 Year
  Sex: Female

DRUGS (4)
  1. FISH OIL [Concomitant]
     Active Substance: FISH OIL
  2. ZOLOFT [Concomitant]
     Active Substance: SERTRALINE HYDROCHLORIDE
  3. COPAXONE [Suspect]
     Active Substance: GLATIRAMER ACETATE
     Indication: MULTIPLE SCLEROSIS
     Dosage: 40 MG 3 X WEEKLY SQ
     Route: 058
     Dates: start: 20090609
  4. VITAMIN D [Concomitant]
     Active Substance: CHOLECALCIFEROL

REACTIONS (10)
  - Cystitis [None]
  - Visual impairment [None]
  - Musculoskeletal stiffness [None]
  - Abdominal pain upper [None]
  - Gastrointestinal infection [None]
  - Burning sensation [None]
  - Dizziness [None]
  - Fatigue [None]
  - Injection site reaction [None]
  - Depression [None]

NARRATIVE: CASE EVENT DATE: 20170420
